FAERS Safety Report 9401066 (Version 1)
Quarter: 2013Q3

REPORT INFORMATION
  Report Type: Spontaneous
  Country: US (occurrence: US)
  Receive Date: 20130715
  Receipt Date: 20130715
  Transmission Date: 20140515
  Serious: No
  Sender: FDA-Public Use
  Company Number: US-PFIZER INC-2013198445

PATIENT
  Age: 54 Year
  Sex: Female
  Weight: 113.38 kg

DRUGS (7)
  1. LYRICA [Suspect]
     Indication: FIBROMYALGIA
     Dosage: 75 MG, 2X/DAY
     Route: 048
     Dates: end: 201306
  2. LYRICA [Suspect]
     Indication: DIABETIC NEUROPATHY
  3. INSULIN [Concomitant]
     Indication: DIABETES MELLITUS
     Dosage: UNK
  4. METFORMIN [Concomitant]
     Indication: DIABETES MELLITUS
     Dosage: UNK
  5. LANTUS [Concomitant]
     Indication: DIABETES MELLITUS
     Dosage: UNK
  6. HUMALOG [Concomitant]
     Indication: DIABETES MELLITUS
     Dosage: UNK
  7. LAMOTRIGINE [Concomitant]
     Dosage: UNK

REACTIONS (3)
  - Musculoskeletal pain [Not Recovered/Not Resolved]
  - Back pain [Not Recovered/Not Resolved]
  - Hearing impaired [Not Recovered/Not Resolved]
